FAERS Safety Report 9125165 (Version 1)
Quarter: 2013Q1

REPORT INFORMATION
  Report Type: Report from Study
  Country: FR (occurrence: FR)
  Receive Date: 20130227
  Receipt Date: 20130227
  Transmission Date: 20140127
  Serious: Yes (Hospitalization, Disabling)
  Sender: FDA-Public Use
  Company Number: FR-ROCHE-1192817

PATIENT
  Age: 72 Year
  Sex: Female

DRUGS (27)
  1. TOCILIZUMAB [Suspect]
     Indication: RHEUMATOID ARTHRITIS
     Route: 041
     Dates: start: 20101007
  2. TOCILIZUMAB [Suspect]
     Route: 041
     Dates: start: 20101104
  3. TOCILIZUMAB [Suspect]
     Route: 041
     Dates: start: 20101202
  4. TOCILIZUMAB [Suspect]
     Route: 041
     Dates: start: 20110215
  5. TOCILIZUMAB [Suspect]
     Route: 041
     Dates: start: 20110314
  6. TOCILIZUMAB [Suspect]
     Route: 041
     Dates: start: 20110418
  7. TOCILIZUMAB [Suspect]
     Route: 041
     Dates: start: 20110927
  8. TOCILIZUMAB [Suspect]
     Route: 041
     Dates: start: 20111025
  9. TOCILIZUMAB [Suspect]
     Route: 041
     Dates: start: 20111128
  10. TOCILIZUMAB [Suspect]
     Route: 041
     Dates: start: 20120103
  11. TOCILIZUMAB [Suspect]
     Route: 041
     Dates: start: 20120207
  12. TOCILIZUMAB [Suspect]
     Route: 041
     Dates: start: 20120306
  13. TOCILIZUMAB [Suspect]
     Route: 041
     Dates: start: 20120403
  14. TOCILIZUMAB [Suspect]
     Route: 041
     Dates: start: 20120507
  15. TOCILIZUMAB [Suspect]
     Route: 041
     Dates: start: 20120618
  16. TOCILIZUMAB [Suspect]
     Route: 041
     Dates: start: 20120723
  17. TOCILIZUMAB [Suspect]
     Route: 041
     Dates: start: 20120827
  18. TOCILIZUMAB [Suspect]
     Route: 041
     Dates: start: 20121001
  19. TOCILIZUMAB [Suspect]
     Route: 041
     Dates: start: 20110515
  20. TOCILIZUMAB [Suspect]
     Route: 041
     Dates: start: 20110628
  21. TOCILIZUMAB [Suspect]
     Route: 041
     Dates: start: 20110727
  22. TOCILIZUMAB [Suspect]
     Route: 041
     Dates: start: 20110830
  23. CORTANCYL [Concomitant]
     Route: 065
  24. CORTANCYL [Concomitant]
     Route: 065
     Dates: start: 20101202
  25. CORTANCYL [Concomitant]
     Route: 065
     Dates: start: 20110418
  26. CORTANCYL [Concomitant]
     Route: 065
     Dates: start: 20110927
  27. CORTANCYL [Concomitant]
     Route: 065
     Dates: start: 20121001

REACTIONS (7)
  - Inguinal hernia [Recovered/Resolved]
  - Infusion related reaction [Recovered/Resolved]
  - Neutropenia [Not Recovered/Not Resolved]
  - Asthenia [Recovered/Resolved]
  - Lung infiltration [Not Recovered/Not Resolved]
  - Asthenia [Recovered/Resolved]
  - Lung infection [Not Recovered/Not Resolved]
